FAERS Safety Report 6532367-2 (Version None)
Quarter: 2010Q1

REPORT INFORMATION
  Report Type: 
  Country: None (occurrence: None)
  Receive Date: 20100108
  Receipt Date: 20091231
  Transmission Date: 20100710
  Serious: Yes (Hospitalization)
  Sender: FDA-Public Use
  Company Number: FR-PFIZER INC-2009316220

PATIENT
  Age: 53 Year
  Sex: Female

DRUGS (3)
  1. CELEBREX [Suspect]
     Indication: ARTHRITIS
     Dosage: 100 MG, 2X/DAY
     Route: 048
     Dates: start: 20091001, end: 20091008
  2. ACTISKENAN [Suspect]
     Dosage: 10 MG, 6 PER DAY
     Route: 048
     Dates: start: 20091027, end: 20091110
  3. FENATYL [Suspect]
     Dosage: 12 UG, PER HOUR
     Route: 062
     Dates: start: 20091012, end: 20091117

REACTIONS (9)
  - ABDOMINAL PAIN UPPER [None]
  - DRUG HYPERSENSITIVITY [None]
  - DYSPHAGIA [None]
  - DYSPNOEA [None]
  - FACE OEDEMA [None]
  - LOCALISED OEDEMA [None]
  - OEDEMA [None]
  - SWOLLEN TONGUE [None]
  - URTICARIA [None]
